FAERS Safety Report 11698752 (Version 1)
Quarter: 2015Q4

REPORT INFORMATION
  Report Type: Report from Study
  Country: BR (occurrence: BR)
  Receive Date: 20151104
  Receipt Date: 20151104
  Transmission Date: 20160304
  Serious: Yes (Other)
  Sender: FDA-Public Use
  Company Number: PHHY2015BR140565

PATIENT
  Sex: Female
  Weight: 75 kg

DRUGS (1)
  1. FORASEQ [Suspect]
     Active Substance: BUDESONIDE\FORMOTEROL FUMARATE
     Indication: ASTHMA
     Dosage: 1 DF, QD (STARTED APPROXIMATELY 15 YEARS AGO)
     Route: 065

REACTIONS (5)
  - Memory impairment [Unknown]
  - Brain injury [Unknown]
  - Cerebrovascular accident [Unknown]
  - Asthma [Unknown]
  - Speech disorder [Unknown]
